FAERS Safety Report 7126307-5 (Version None)
Quarter: 2010Q4

REPORT INFORMATION
  Report Type: 
  Country: None (occurrence: None)
  Receive Date: 20101129
  Receipt Date: 20091012
  Transmission Date: 20110411
  Serious: No
  Sender: FDA-Public Use
  Company Number: A0811823A

PATIENT
  Age: 61 Year
  Sex: Male
  Weight: 103 kg

DRUGS (7)
  1. DIGOXIN [Suspect]
     Route: 065
     Dates: start: 20090601
  2. LANTUS [Suspect]
     Dosage: 80U AT NIGHT
     Route: 058
     Dates: start: 20060101
  3. LEVEMIR [Suspect]
     Route: 065
  4. LIPITOR [Concomitant]
  5. NOVOLOG [Concomitant]
     Dates: start: 20050101
  6. LYRICA [Concomitant]
  7. ATACAND [Concomitant]

REACTIONS (3)
  - BENIGN BREAST NEOPLASM [None]
  - BLOOD GLUCOSE ABNORMAL [None]
  - GYNAECOMASTIA [None]
